FAERS Safety Report 8581279-1 (Version None)
Quarter: 2012Q3

REPORT INFORMATION
  Report Type: 
  Country: None (occurrence: None)
  Receive Date: 20120809
  Receipt Date: 20120801
  Transmission Date: 20120928
  Serious: Yes (Hospitalization)
  Sender: FDA-Public Use
  Company Number: US-BAYER-2012-078958

PATIENT
  Age: 36 Year
  Sex: Female

DRUGS (5)
  1. YASMIN [Suspect]
     Dosage: UNK
     Dates: start: 20080830, end: 20110110
  2. DROSPIRENONE AND ETHINYL ESTRADIOL [Suspect]
     Dosage: UNK
     Dates: start: 20080830, end: 20110110
  3. DOXYCYCLINE HYCLATE [Concomitant]
     Dosage: 100 MG, UNK
     Dates: start: 20101129
  4. CHLORPHENIRAMINE W/HYDROCODONE [Concomitant]
     Dosage: UNK
     Dates: start: 20101129
  5. LORCET-HD [Concomitant]

REACTIONS (1)
  - PULMONARY EMBOLISM [None]
